FAERS Safety Report 9290036 (Version 1)
Quarter: 2012Q4

REPORT INFORMATION
  Report Type: Spontaneous
  Country: US (occurrence: None)
  Receive Date: 20121003
  Receipt Date: 20121003
  Transmission Date: 20130627
  Serious: Yes (Death, Hospitalization)
  Sender: FDA-Public Use
  Company Number: BUTA20110010

PATIENT
  Age: 30 Year
  Sex: Male
  Weight: 68.49 kg

DRUGS (4)
  1. BUTALBITAL/ACETMINOPHEN/CAFFEINE [Suspect]
     Indication: HEADACHE
     Route: 048
     Dates: start: 201106, end: 201106
  2. ENDOCET [Suspect]
     Indication: PRODUCT USED FOR UNKNOWN INDICATION
     Route: 048
     Dates: start: 201106, end: 201106
  3. OXYCONTIN [Suspect]
     Indication: PRODUCT USED FOR UNKNOWN INDICATION
     Route: 048
     Dates: start: 201106, end: 201106
  4. FLEXERIL (CYCLOBENZAPRINE) [Concomitant]

REACTIONS (5)
  - Convulsion [None]
  - Sedation [None]
  - Anogenital warts [None]
  - Disseminated cryptococcosis [None]
  - HIV infection [None]
